FAERS Safety Report 14379911 (Version 1)
Quarter: 2018Q1

REPORT INFORMATION
  Report Type: Spontaneous
  Country: CN (occurrence: CN)
  Receive Date: 20180112
  Receipt Date: 20180112
  Transmission Date: 20180509
  Serious: Yes (Death, Life-Threatening, Hospitalization, Other)
  Sender: FDA-Public Use
  Company Number: CN-STRIDES ARCOLAB LIMITED-2018SP000184

PATIENT

DRUGS (11)
  1. CEFMINOX SODIUM [Suspect]
     Active Substance: CEFMINOX SODIUM
     Indication: INFLUENZA
     Dosage: UNKNOWN
     Route: 065
     Dates: start: 20170206, end: 20170210
  2. MOXIFLOXACIN. [Suspect]
     Active Substance: MOXIFLOXACIN
     Indication: INFLUENZA
     Dosage: UNKNOWN
     Route: 065
     Dates: start: 20170210, end: 20170211
  3. CEFUROXIME SODIUM. [Suspect]
     Active Substance: CEFUROXIME SODIUM
     Indication: INFLUENZA
     Dosage: UNKNOWN
     Route: 065
     Dates: start: 20170213
  4. OSELTAMIVIR [Suspect]
     Active Substance: OSELTAMIVIR
     Indication: INFLUENZA
     Dosage: UNKNOWN
     Route: 065
     Dates: start: 201702
  5. CEFOTAXIME [Suspect]
     Active Substance: CEFOTAXIME SODIUM
     Indication: INFLUENZA
     Dosage: UNKNOWN
     Route: 065
     Dates: start: 201702
  6. AZITHROMYCIN ANHYDROUS. [Suspect]
     Active Substance: AZITHROMYCIN ANHYDROUS
     Indication: INFLUENZA
     Dosage: UNKNOWN
     Route: 065
     Dates: start: 20170213
  7. OSELTAMIVIR [Suspect]
     Active Substance: OSELTAMIVIR
     Dosage: UNKNOWN
     Route: 065
     Dates: start: 20170213
  8. VANCOMYCIN [Suspect]
     Active Substance: VANCOMYCIN
     Indication: INFLUENZA
     Dosage: UNKNOWN
     Route: 042
     Dates: start: 201702
  9. CILASTATIN SODIUM, IMIPENEM [Suspect]
     Active Substance: CILASTATIN SODIUM\IMIPENEM
     Indication: INFLUENZA
     Dosage: UNKNOWN
     Route: 065
     Dates: start: 20170211, end: 20170213
  10. VANCOMYCIN [Suspect]
     Active Substance: VANCOMYCIN
     Dosage: UNKNOWN
     Route: 042
     Dates: start: 20170211, end: 20170213
  11. OSELTAMIVIR [Suspect]
     Active Substance: OSELTAMIVIR
     Dosage: UNKNOWN
     Route: 065
     Dates: start: 20170210, end: 20170211

REACTIONS (1)
  - Drug ineffective [Fatal]
